FAERS Safety Report 7829155-3 (Version None)
Quarter: 2011Q4

REPORT INFORMATION
  Report Type: 
  Country: None (occurrence: None)
  Receive Date: 20111020
  Receipt Date: 20111012
  Transmission Date: 20120403
  Serious: Yes (Hospitalization)
  Sender: FDA-Public Use
  Company Number: PHHY2011EC90648

PATIENT
  Sex: Female

DRUGS (2)
  1. DIOVAN HCT [Suspect]
     Indication: HYPERTENSION
     Dosage: 1 DF (160/12.5 MG) DAILY
     Route: 048
     Dates: start: 20010101
  2. BONIVA [Concomitant]
     Indication: OSTEOPOROSIS
     Dosage: 3MG/3ML, 1 APPLICATION EVERY THREE MONTHS
     Route: 042

REACTIONS (1)
  - CATARACT [None]
